FAERS Safety Report 11869169 (Version 1)
Quarter: 2015Q4

REPORT INFORMATION
  Report Type: Spontaneous
  Country: IT (occurrence: IT)
  Receive Date: 20151226
  Receipt Date: 20151226
  Transmission Date: 20160305
  Serious: Yes (Hospitalization)
  Sender: FDA-Public Use
  Company Number: IT-ACCORD-036539

PATIENT
  Age: 87 Year
  Sex: Female

DRUGS (3)
  1. ALLOPURINOL. [Suspect]
     Active Substance: ALLOPURINOL
     Indication: HYPERURICAEMIA
  2. CEFTRIAXONE. [Suspect]
     Active Substance: CEFTRIAXONE
     Indication: ACUTE FEBRILE NEUTROPHILIC DERMATOSIS
  3. LEVOFLOXACIN/LEVOFLOXACIN MESYLATE [Suspect]
     Active Substance: LEVOFLOXACIN
     Indication: ACUTE FEBRILE NEUTROPHILIC DERMATOSIS

REACTIONS (3)
  - Off label use [Unknown]
  - Acute febrile neutrophilic dermatosis [Recovered/Resolved]
  - Drug ineffective [Unknown]
